FAERS Safety Report 4523824-9 (Version None)
Quarter: 2004Q4

REPORT INFORMATION
  Report Type: 
  Country: None (occurrence: None)
  Receive Date: 20041210
  Receipt Date: 20041210
  Transmission Date: 20050328
  Serious: Yes (Death, Life-Threatening, Hospitalization)
  Sender: FDA-Public Use
  Company Number: None

PATIENT
  Age: 52 Year
  Sex: Male
  Weight: 61.2 kg

DRUGS (5)
  1. ETOPOSIDE [Suspect]
     Indication: ACUTE MYELOID LEUKAEMIA
     Dates: start: 20041016, end: 20041022
  2. ETOPOSIDE [Suspect]
     Indication: DRUG INEFFECTIVE
     Dates: start: 20041016, end: 20041022
  3. MITOXANTRONE [Suspect]
     Indication: ACUTE MYELOID LEUKAEMIA
     Dates: start: 20041016, end: 20041022
  4. MITOXANTRONE [Suspect]
     Indication: DRUG INEFFECTIVE
     Dates: start: 20041016, end: 20041022
  5. ARA C [Concomitant]

REACTIONS (21)
  - APLASIA [None]
  - CELLULITIS [None]
  - CHILLS [None]
  - DIARRHOEA [None]
  - DIZZINESS [None]
  - DRUG INEFFECTIVE [None]
  - FACIAL PAIN [None]
  - FATIGUE [None]
  - FEBRILE NEUTROPENIA [None]
  - FUNGAEMIA [None]
  - FUNGAL INFECTION [None]
  - HEADACHE [None]
  - LOBAR PNEUMONIA [None]
  - NAUSEA [None]
  - PANCYTOPENIA [None]
  - PERIODONTAL DISEASE [None]
  - PLATELET COUNT DECREASED [None]
  - PNEUMONIA FUNGAL [None]
  - STAPHYLOCOCCAL BACTERAEMIA [None]
  - TOOTH ABSCESS [None]
  - VOMITING [None]
